FAERS Safety Report 7733132-0 (Version None)
Quarter: 2011Q3

REPORT INFORMATION
  Report Type: 
  Country: None (occurrence: None)
  Receive Date: 20110907
  Receipt Date: 20110905
  Transmission Date: 20111222
  Serious: Yes (Death, Hospitalization)
  Sender: FDA-Public Use
  Company Number: PHFR2011IE02796

PATIENT
  Sex: Female

DRUGS (4)
  1. VALPROIC ACID [Concomitant]
     Indication: SCHIZOPHRENIA
     Dosage: 800 MG/DAY
     Dates: start: 19971101
  2. SERTRALINE HYDROCHLORIDE [Concomitant]
     Dosage: 200 MG/DAY
     Dates: start: 19971101
  3. CLOZAPINE [Suspect]
     Indication: SCHIZOPHRENIA
     Route: 048
     Dates: start: 19940225
  4. QUETIAPINE [Concomitant]
     Indication: SCHIZOPHRENIA
     Dosage: 200 MG/DAY
     Dates: start: 20060301

REACTIONS (4)
  - METASTASES TO LIVER [None]
  - LUNG CANCER METASTATIC [None]
  - CEREBROVASCULAR ACCIDENT [None]
  - METASTASES TO CENTRAL NERVOUS SYSTEM [None]
